FAERS Safety Report 25117392 (Version 1)
Quarter: 2025Q1

REPORT INFORMATION
  Report Type: Spontaneous
  Country: ZA (occurrence: ZA)
  Receive Date: 20250325
  Receipt Date: 20250325
  Transmission Date: 20250409
  Serious: Yes (Hospitalization, Other)
  Sender: AUROBINDO
  Company Number: ZA-MLMSERVICE-20250303-PI435071-00271-1

PATIENT
  Age: 26 Year
  Sex: Female

DRUGS (10)
  1. PIPERACILLIN AND TAZOBACTAM [Suspect]
     Active Substance: PIPERACILLIN SODIUM\TAZOBACTAM SODIUM
     Indication: Pneumonia
     Dosage: 4.5 GRAM, 3 TIMES A DAY
     Route: 042
     Dates: start: 2023, end: 2023
  2. ERTAPENEM [Suspect]
     Active Substance: ERTAPENEM
     Indication: Nosocomial infection
     Dosage: 1 GRAM, ONCE A DAY
     Route: 042
     Dates: start: 202401
  3. CEFTRIAXONE [Suspect]
     Active Substance: CEFTRIAXONE
     Indication: Pneumonia
     Dosage: 1 GRAM, ONCE A DAY
     Route: 042
     Dates: start: 2023, end: 2023
  4. CEFTRIAXONE [Suspect]
     Active Substance: CEFTRIAXONE
     Indication: Antibiotic therapy
     Dosage: 2 GRAM, ONCE A DAY
     Route: 065
     Dates: start: 202401
  5. CEFTRIAXONE [Suspect]
     Active Substance: CEFTRIAXONE
     Indication: Evidence based treatment
  6. AMIKACIN [Suspect]
     Active Substance: AMIKACIN
     Indication: Pneumonia
     Dosage: 750 MILLIGRAM, ONCE A DAY
     Route: 042
     Dates: start: 2023, end: 2023
  7. PREDNISONE [Suspect]
     Active Substance: PREDNISONE
     Indication: Organising pneumonia
     Route: 048
     Dates: start: 20231222, end: 2024
  8. RIFAMPIN [Suspect]
     Active Substance: RIFAMPIN
     Indication: Antibiotic therapy
     Dosage: 600 MILLIGRAM, TWO TIMES A DAY
     Route: 065
     Dates: start: 202401
  9. RIFAMPIN [Suspect]
     Active Substance: RIFAMPIN
     Indication: Evidence based treatment
  10. VANCOMYCIN [Concomitant]
     Active Substance: VANCOMYCIN
     Indication: Nosocomial infection
     Route: 042
     Dates: start: 202401, end: 202401

REACTIONS (5)
  - Prosthetic valve endocarditis [Recovered/Resolved]
  - Fungal endocarditis [Recovered/Resolved]
  - Lung abscess [Recovered/Resolved]
  - Infectious pleural effusion [Recovered/Resolved]
  - Fusarium infection [Recovered/Resolved]

NARRATIVE: CASE EVENT DATE: 20240101
